FAERS Safety Report 9108365 (Version 1)
Quarter: 2013Q1

REPORT INFORMATION
  Report Type: Spontaneous
  Country: CH (occurrence: CH)
  Receive Date: 20130222
  Receipt Date: 20130222
  Transmission Date: 20140127
  Serious: Yes (Hospitalization)
  Sender: FDA-Public Use
  Company Number: PHHY2013CH017205

PATIENT
  Age: 63 Year
  Sex: Female

DRUGS (5)
  1. GILENYA [Suspect]
     Indication: MULTIPLE SCLEROSIS
     Dosage: 0.5 MG, QD
     Route: 048
     Dates: start: 20121128, end: 20121231
  2. ALLOPURINOL [Concomitant]
     Dosage: 100 MG, QD
     Route: 048
  3. ATACAND [Concomitant]
     Dosage: 8 MG, QD
     Route: 048
  4. OPTIFEN [Concomitant]
     Route: 048
  5. SOLU-MEDROL [Concomitant]
     Dosage: 500 MG, UNK
     Route: 040
     Dates: start: 20121218, end: 20121222

REACTIONS (6)
  - Muscle spasms [Recovered/Resolved]
  - Fatigue [Recovered/Resolved]
  - Visual impairment [Recovered/Resolved]
  - Dysphagia [Recovered/Resolved]
  - Headache [Recovered/Resolved]
  - Dyspnoea [Recovered/Resolved]
